FAERS Safety Report 14914745 (Version 2)
Quarter: 2018Q2

REPORT INFORMATION
  Report Type: Spontaneous
  Country: US (occurrence: US)
  Receive Date: 20180518
  Receipt Date: 20180521
  Transmission Date: 20180711
  Serious: Yes (Hospitalization)
  Sender: FDA-Public Use
  Company Number: US-PFIZER INC-2018200730

PATIENT
  Age: 72 Year
  Sex: Male
  Weight: 92.8 kg

DRUGS (3)
  1. MYLOTARG [Suspect]
     Active Substance: GEMTUZUMAB OZOGAMICIN
     Dosage: UNK (DAY 4 DOSE)
     Dates: start: 20180423
  2. MYLOTARG [Suspect]
     Active Substance: GEMTUZUMAB OZOGAMICIN
     Indication: ACUTE MYELOID LEUKAEMIA RECURRENT
     Dosage: 4.5 MG, UNK, (ON DAYS 1, 4, AND 7)
     Route: 042
     Dates: start: 20180420
  3. MYLOTARG [Suspect]
     Active Substance: GEMTUZUMAB OZOGAMICIN
     Dosage: UNK
     Dates: start: 20180426

REACTIONS (2)
  - Epistaxis [Recovered/Resolved]
  - Pyrexia [Recovered/Resolved]
